FAERS Safety Report 8587190-4 (Version None)
Quarter: 2012Q3

REPORT INFORMATION
  Report Type: 
  Country: None (occurrence: None)
  Receive Date: 20120810
  Receipt Date: 20120313
  Transmission Date: 20120928
  Serious: No
  Sender: FDA-Public Use
  Company Number: US-ASTRAZENECA-2010SE54022

PATIENT
  Age: 63 Year
  Sex: Female

DRUGS (3)
  1. ARIMIDEX [Suspect]
     Route: 048
  2. SIMVASTATIN [Suspect]
     Route: 065
  3. ARIMIDEX [Suspect]
     Route: 048
     Dates: end: 20100701

REACTIONS (3)
  - PAIN IN EXTREMITY [None]
  - ADVERSE DRUG REACTION [None]
  - MALAISE [None]
